FAERS Safety Report 13378013 (Version 4)
Quarter: 2017Q2

REPORT INFORMATION
  Report Type: Spontaneous
  Country: SE (occurrence: SE)
  Receive Date: 20170328
  Receipt Date: 20170428
  Transmission Date: 20170830
  Serious: Yes (Other)
  Sender: FDA-Public Use
  Company Number: SE-PFIZER INC-2017131122

PATIENT
  Age: 59 Year
  Sex: Female
  Weight: 96 kg

DRUGS (4)
  1. RINEXIN [Concomitant]
     Active Substance: PHENYLPROPANOLAMINE
     Dosage: UNK
  2. DIVISUN [Concomitant]
     Dosage: UNK
  3. CHAMPIX [Suspect]
     Active Substance: VARENICLINE TARTRATE
     Indication: SMOKING CESSATION THERAPY
     Dosage: UNK
     Route: 048
     Dates: start: 20170108, end: 20170308
  4. VENLAFAXINE [Concomitant]
     Active Substance: VENLAFAXINE HYDROCHLORIDE
     Dosage: UNK

REACTIONS (8)
  - Hypersensitivity [Recovering/Resolving]
  - Swollen tongue [Recovering/Resolving]
  - Angioedema [Recovering/Resolving]
  - Lip swelling [Recovering/Resolving]
  - Dry mouth [Recovering/Resolving]
  - Paraesthesia [Recovering/Resolving]
  - Oral mucosal blistering [Recovering/Resolving]
  - Impetigo [Unknown]

NARRATIVE: CASE EVENT DATE: 2017
